FAERS Safety Report 14175793 (Version 1)
Quarter: 2017Q4

REPORT INFORMATION
  Report Type: Spontaneous
  Country: IS (occurrence: IS)
  Receive Date: 20171109
  Receipt Date: 20171109
  Transmission Date: 20180321
  Serious: Yes (Other)
  Sender: FDA-Public Use
  Company Number: IS-TEVA-821781ISR

PATIENT
  Age: 82 Year
  Sex: Female
  Weight: 75 kg

DRUGS (7)
  1. SELOKEN ZOC 47,5 MG [Concomitant]
     Dosage: 1 X 1
  2. SIMVASTATIN ACTAVIS 20 MG FILMTABLETTEN [Concomitant]
     Dosage: 1 X 1
  3. RABEPRAZOL ACTAVIS 20 MG [Suspect]
     Active Substance: RABEPRAZOLE SODIUM
     Indication: GASTROOESOPHAGEAL REFLUX DISEASE
     Dosage: 1 X 1
     Dates: start: 20120307
  4. DIAMICRON UNO 30 MG [Concomitant]
     Dosage: 3 X 1
  5. HJARTAMAGN 75 MG [Concomitant]
     Dosage: 1 X 1
  6. COZAAR COMP 50 MG/12.5 MG FILM-COATED TABLETS [Concomitant]
     Dosage: 1 X 1
  7. GLUCOPHAGE 500 MG FILMTABLETTEN [Concomitant]
     Dosage: 1 X 2

REACTIONS (4)
  - Gastric ulcer haemorrhage [Not Recovered/Not Resolved]
  - Drug ineffective [Not Recovered/Not Resolved]
  - Abdominal pain [Not Recovered/Not Resolved]
  - Anaemia [Not Recovered/Not Resolved]
